FAERS Safety Report 22173469 (Version 1)
Quarter: 2023Q2

REPORT INFORMATION
  Report Type: Report from Study
  Country: BG (occurrence: BG)
  Receive Date: 20230404
  Receipt Date: 20230404
  Transmission Date: 20230721
  Serious: Yes (Life-Threatening)
  Sender: FDA-Public Use
  Company Number: BG-ALNYLAM PHARMACEUTICALS, INC.-ALN-2023-001466

PATIENT

DRUGS (1)
  1. ONPATTRO [Suspect]
     Active Substance: PATISIRAN SODIUM
     Indication: Hereditary neuropathic amyloidosis
     Dosage: 5 ML/FL, PRESCRIBED FOR 42 DAYS: FIRST 21 DAYS -2 VIALS, AFTER 21 DAYS - 1 VIAL.
     Route: 042
     Dates: start: 20210410

REACTIONS (3)
  - Respiratory failure [Unknown]
  - Blood pressure decreased [Recovered/Resolved]
  - Pulse absent [Recovered/Resolved]

NARRATIVE: CASE EVENT DATE: 20230330
